FAERS Safety Report 19278061 (Version 1)
Quarter: 2021Q2

REPORT INFORMATION
  Report Type: Spontaneous
  Country: US (occurrence: US)
  Receive Date: 20210519
  Receipt Date: 20210519
  Transmission Date: 20210717
  Serious: Yes (Hospitalization)
  Sender: FDA-Public Use
  Company Number: None

PATIENT
  Sex: Male

DRUGS (6)
  1. ATORVASTATIN [Concomitant]
     Active Substance: ATORVASTATIN
     Indication: ANKYLOSING SPONDYLITIS
  2. BASAGALAR [Concomitant]
  3. VIT D [Concomitant]
     Active Substance: VITAMIN D NOS
  4. GABAPENTIN. [Concomitant]
     Active Substance: GABAPENTIN
  5. METOLAZONE. [Concomitant]
     Active Substance: METOLAZONE
  6. ENBREL [Suspect]
     Active Substance: ETANERCEPT
     Indication: ANKYLOSING SPONDYLITIS
     Route: 058
     Dates: start: 20210304

REACTIONS (3)
  - Dizziness [None]
  - Loss of personal independence in daily activities [None]
  - Fall [None]
